FAERS Safety Report 8848424 (Version 1)
Quarter: 2012Q4

REPORT INFORMATION
  Report Type: 
  Country: US (occurrence: US)
  Receive Date: 20121019
  Receipt Date: 20121019
  Transmission Date: 20130627
  Serious: No
  Sender: FDA-Public Use
  Company Number: US-BIOGENIDEC-2012BI043728

PATIENT
  Sex: Female

DRUGS (1)
  1. TYSABRI [Suspect]
     Indication: MULTIPLE SCLEROSIS
     Route: 042
     Dates: start: 20120308, end: 20120830

REACTIONS (8)
  - Decreased immune responsiveness [Recovered/Resolved]
  - Adverse drug reaction [Unknown]
  - Multiple sclerosis relapse [Not Recovered/Not Resolved]
  - Influenza [Recovered/Resolved]
  - Respiratory tract infection [Not Recovered/Not Resolved]
  - Headache [Unknown]
  - Arthralgia [Unknown]
  - Sinusitis [Unknown]
